FAERS Safety Report 7999609-8 (Version None)
Quarter: 2011Q4

REPORT INFORMATION
  Report Type: 
  Country: None (occurrence: None)
  Receive Date: 20111221
  Receipt Date: 20111213
  Transmission Date: 20120403
  Serious: Yes (Hospitalization, Disabling)
  Sender: FDA-Public Use
  Company Number: US-MERCK-1104USA02662

PATIENT
  Age: 67 Year
  Sex: Female

DRUGS (10)
  1. ALENDRONATE SODIUM [Suspect]
     Indication: OSTEOPOROSIS
     Route: 048
     Dates: start: 20080601, end: 20090401
  2. HORMONES (UNSPECIFIED) [Concomitant]
     Route: 048
     Dates: start: 19970101, end: 20020101
  3. CALCIUM (UNSPECIFIED) AND VITAMIN D (UNSPECIFIED) [Concomitant]
     Route: 048
     Dates: start: 19800101
  4. VITAMIN E [Concomitant]
     Route: 048
     Dates: start: 19800101
  5. MYSOLINE [Concomitant]
     Indication: EPILEPSY
     Route: 048
     Dates: start: 19970101, end: 20030101
  6. FOSAMAX [Suspect]
     Indication: OSTEOPOROSIS
     Route: 048
     Dates: start: 19981201, end: 20010401
  7. FOSAMAX [Suspect]
     Route: 048
     Dates: start: 20010401, end: 20080601
  8. ASCORBIC ACID [Concomitant]
     Route: 048
     Dates: start: 19800101
  9. CORTICOSTEROIDS (UNSPECIFIED) [Concomitant]
     Route: 048
     Dates: start: 19910101, end: 20060101
  10. DILANTIN [Concomitant]
     Indication: EPILEPSY
     Route: 048
     Dates: start: 19970101

REACTIONS (11)
  - FRACTURE NONUNION [None]
  - LOW TURNOVER OSTEOPATHY [None]
  - FALL [None]
  - WRIST FRACTURE [None]
  - ANKLE FRACTURE [None]
  - OSTEOPOROSIS [None]
  - STRESS FRACTURE [None]
  - FEMUR FRACTURE [None]
  - FOOT FRACTURE [None]
  - PAIN IN EXTREMITY [None]
  - HYPERTENSION [None]
